FAERS Safety Report 9306467 (Version 6)
Quarter: 2015Q1

REPORT INFORMATION
  Report Type: Spontaneous
  Country: US (occurrence: US)
  Receive Date: 20130523
  Receipt Date: 20150112
  Transmission Date: 20150721
  Serious: Yes (Disabling)
  Sender: FDA-Public Use
  Company Number: US-009507513-1305USA012216

PATIENT
  Sex: Male
  Weight: 91.61 kg

DRUGS (2)
  1. VASOTEC [Concomitant]
     Active Substance: ENALAPRIL MALEATE
     Indication: ESSENTIAL HYPERTENSION
     Dosage: 5MG QD-10MG BID
     Dates: start: 19890830, end: 20030818
  2. PROPECIA [Suspect]
     Active Substance: FINASTERIDE
     Indication: ALOPECIA
     Dosage: 1 MG, QD
     Route: 048
     Dates: start: 19980413, end: 200802

REACTIONS (15)
  - Soft tissue injury [Unknown]
  - Sexual dysfunction [Not Recovered/Not Resolved]
  - Road traffic accident [Unknown]
  - Groin pain [Unknown]
  - Organic erectile dysfunction [Not Recovered/Not Resolved]
  - Myalgia [Unknown]
  - Fatigue [Unknown]
  - Adverse event [Not Recovered/Not Resolved]
  - Anxiety [Not Recovered/Not Resolved]
  - Panic attack [Unknown]
  - Hypertension [Unknown]
  - Hypoaesthesia [Unknown]
  - Brain injury [Unknown]
  - Libido decreased [Unknown]
  - Depression [Unknown]

NARRATIVE: CASE EVENT DATE: 199808
